FAERS Safety Report 19582050 (Version 7)
Quarter: 2021Q3

REPORT INFORMATION
  Report Type: Report from Study
  Country: US (occurrence: US)
  Receive Date: 20210720
  Receipt Date: 20210917
  Transmission Date: 20211014
  Serious: Yes (Hospitalization, Other)
  Sender: FDA-Public Use
  Company Number: NVSC2021US156576

PATIENT
  Age: 70 Year
  Sex: Female
  Weight: 65.31 kg

DRUGS (7)
  1. TREPROSTINIL. [Suspect]
     Active Substance: TREPROSTINIL
     Indication: PULMONARY ARTERIAL HYPERTENSION
     Dosage: UNK, CONT (59 NG/KG/MIN) (10 MG/ML)
     Route: 058
     Dates: start: 20210621
  2. TREPROSTINIL. [Suspect]
     Active Substance: TREPROSTINIL
     Dosage: UNK
     Route: 058
  3. TREPROSTINIL. [Suspect]
     Active Substance: TREPROSTINIL
     Dosage: UNK, CONT (64 NG/KG/MIN) (5 MG/ML)
     Route: 058
  4. OPSUMIT [Concomitant]
     Active Substance: MACITENTAN
     Indication: PRODUCT USED FOR UNKNOWN INDICATION
     Dosage: UNK
     Route: 065
  5. TREPROSTINIL. [Suspect]
     Active Substance: TREPROSTINIL
     Dosage: UNK, CONT (59 NG/KG/MIN) (5 MG/ML)
     Route: 058
     Dates: start: 20210621
  6. TREPROSTINIL. [Suspect]
     Active Substance: TREPROSTINIL
     Dosage: 64 NG/KG/MIN CONT(STRENGTH: 10 MG/ML)
     Route: 058
  7. REVATIO [Concomitant]
     Active Substance: SILDENAFIL CITRATE
     Indication: PRODUCT USED FOR UNKNOWN INDICATION
     Dosage: UNK
     Route: 065

REACTIONS (8)
  - Abdominal distension [Unknown]
  - Disease progression [Unknown]
  - Diarrhoea [Not Recovered/Not Resolved]
  - Cardiac failure [Unknown]
  - Pulmonary arterial hypertension [Unknown]
  - Weight decreased [Unknown]
  - Fluid overload [Unknown]
  - Fluid retention [Unknown]

NARRATIVE: CASE EVENT DATE: 20210825
